FAERS Safety Report 17004241 (Version 1)
Quarter: 2019Q4

REPORT INFORMATION
  Report Type: Spontaneous
  Country: GB (occurrence: GB)
  Receive Date: 20191107
  Receipt Date: 20191107
  Transmission Date: 20200122
  Serious: Yes (Other)
  Sender: FDA-Public Use
  Company Number: GB-ASTRAZENECA-2019SF55185

PATIENT
  Age: 48 Year
  Sex: Male
  Weight: 102 kg

DRUGS (4)
  1. ACIDEX [Concomitant]
     Active Substance: CALCIUM CARBONATE\SODIUM ALGINATE\SODIUM BICARBONATE
     Dates: start: 20180703
  2. CYCLIZINE [Concomitant]
     Active Substance: CYCLIZINE
     Dates: start: 20180627
  3. OMEPRAZOLE. [Suspect]
     Active Substance: OMEPRAZOLE
     Indication: DYSPHAGIA
     Route: 048
     Dates: start: 20171108, end: 20171208
  4. PANTOPRAZOLE [Suspect]
     Active Substance: PANTOPRAZOLE
     Indication: DYSPHAGIA
     Route: 048
     Dates: start: 20180627

REACTIONS (2)
  - Tinnitus [Unknown]
  - Deafness [Unknown]
